FAERS Safety Report 9996117 (Version 8)
Quarter: 2014Q3

REPORT INFORMATION
  Report Type: Report from Study
  Country: US (occurrence: US)
  Receive Date: 20140311
  Receipt Date: 20140723
  Transmission Date: 20150326
  Serious: Yes (Other)
  Sender: FDA-Public Use
  Company Number: US-PFIZER INC-2013146950

PATIENT
  Age: 36 Year
  Sex: Female
  Weight: 51 kg

DRUGS (9)
  1. CP-751,871 [Suspect]
     Active Substance: FIGITUMUMAB
     Dosage: UNK
     Route: 042
     Dates: start: 20140225, end: 20140527
  2. VITAMIN D [Concomitant]
     Active Substance: CHOLECALCIFEROL
     Indication: SUPPLEMENTATION THERAPY
     Dosage: 1000 MG, QD
     Route: 048
     Dates: start: 20100801
  3. CP-751,871 [Suspect]
     Active Substance: FIGITUMUMAB
     Dosage: 25 MG, 1X/DAY
     Route: 042
     Dates: start: 20131104, end: 20140201
  4. CP-751,871 [Suspect]
     Active Substance: FIGITUMUMAB
     Indication: ADENOID CYSTIC CARCINOMA
     Dosage: 20 MG/KG, EVERY 3 WEEKS
     Route: 042
     Dates: start: 20130416, end: 20131018
  5. SUNITINIB MALATE [Suspect]
     Active Substance: SUNITINIB MALATE
     Indication: ADENOID CYSTIC CARCINOMA
     Dosage: 25 MG, DAILY
     Route: 048
     Dates: start: 20130416, end: 20140527
  6. MUCINEX [Concomitant]
     Active Substance: GUAIFENESIN
     Indication: NASAL CONGESTION
     Dosage: AS NEEDED
     Route: 048
     Dates: start: 20130126
  7. NASONEX [Concomitant]
     Active Substance: MOMETASONE FUROATE
     Indication: HYPERSENSITIVITY
     Dosage: 2 SPRAYS, ROUTE: NASAL INHALATION, FREQUENCY: QD, FORMULATION: LIQUID SPRAY
     Route: 045
     Dates: start: 20120825
  8. COENZYME Q10 [Concomitant]
     Active Substance: UBIDECARENONE
     Indication: SUPPLEMENTATION THERAPY
     Dosage: 1 TAB, 1X/DAY
     Route: 048
     Dates: start: 20130926
  9. VAGIFEM [Concomitant]
     Active Substance: ESTRADIOL
     Indication: VULVOVAGINAL DRYNESS
     Dosage: 10 MCG, 3X/WEEK
     Route: 067
     Dates: start: 20130401

REACTIONS (10)
  - Gingival disorder [Recovered/Resolved]
  - Muscle spasms [Not Recovered/Not Resolved]
  - Oral pain [Not Recovered/Not Resolved]
  - Dysgeusia [Not Recovered/Not Resolved]
  - Gingival disorder [Recovered/Resolved]
  - Costochondritis [Not Recovered/Not Resolved]
  - Gingival pain [Not Recovered/Not Resolved]
  - Gingival disorder [Recovered/Resolved]
  - Tongue haematoma [Not Recovered/Not Resolved]
  - Epistaxis [Not Recovered/Not Resolved]

NARRATIVE: CASE EVENT DATE: 20130430
